FAERS Safety Report 7507205 (Version 16)
Quarter: 2014Q3

REPORT INFORMATION
  Report Type: Spontaneous
  Country: US (occurrence: US)
  Receive Date: 20100729
  Receipt Date: 20140718
  Transmission Date: 20150326
  Serious: Yes (Hospitalization, Disabling, Congenital Anomaly, Other)
  Sender: FDA-Public Use
  Company Number: US-PFIZER INC-2010092589

PATIENT
  Age: 2 Day
  Sex: Male
  Weight: 3 kg

DRUGS (13)
  1. ENALAPRIL [Concomitant]
     Active Substance: ENALAPRIL
     Dosage: UNK
     Route: 064
  2. ZITHROMAX [Concomitant]
     Active Substance: AZITHROMYCIN DIHYDRATE
     Indication: EAR INFECTION
     Dosage: UNK
     Route: 064
     Dates: start: 20040920
  3. ZOLOFT [Suspect]
     Active Substance: SERTRALINE HYDROCHLORIDE
     Indication: DEPRESSION
     Dosage: 100 MG, ONE TABLET DAILY
     Route: 064
     Dates: start: 20041105
  4. ZOLOFT [Suspect]
     Active Substance: SERTRALINE HYDROCHLORIDE
     Indication: ANXIETY
  5. PROTONIX [Concomitant]
     Active Substance: PANTOPRAZOLE SODIUM
     Dosage: UNK
     Route: 064
  6. ASA [Concomitant]
     Active Substance: ASPIRIN
     Dosage: HALF TABLET ONCE DAILY
     Route: 064
  7. REGLAN [Concomitant]
     Active Substance: METOCLOPRAMIDE HYDROCHLORIDE
     Dosage: UNK
     Route: 064
  8. TYLENOL [Concomitant]
     Active Substance: ACETAMINOPHEN
     Dosage: 650 MG, EVERY 4 TO 6 TIMES WHEN NECESSARY
     Route: 064
     Dates: start: 20040712
  9. PRENATAL VITAMINS [Concomitant]
     Active Substance: VITAMINS
     Dosage: UNK
     Route: 064
  10. ZOLOFT [Suspect]
     Active Substance: SERTRALINE HYDROCHLORIDE
     Indication: DEPRESSED MOOD
     Dosage: 50 MG, ONE TABLET DAILY
     Route: 064
     Dates: start: 20030909
  11. ZOLOFT [Suspect]
     Active Substance: SERTRALINE HYDROCHLORIDE
     Indication: STRESS
  12. PREVACID [Concomitant]
     Active Substance: LANSOPRAZOLE
     Dosage: UNK
     Route: 064
  13. PRILOSEC [Concomitant]
     Active Substance: OMEPRAZOLE MAGNESIUM
     Dosage: UNK
     Route: 064

REACTIONS (38)
  - Pulmonary hypertension [Unknown]
  - Bronchial hyperreactivity [Recovering/Resolving]
  - Arterial stenosis [Unknown]
  - Respiratory muscle weakness [Unknown]
  - Foetal exposure during pregnancy [Unknown]
  - Hypoplastic left heart syndrome [Recovering/Resolving]
  - Cardiac arrest [Unknown]
  - Congenital mitral valve stenosis [Unknown]
  - Tricuspid valve incompetence [Unknown]
  - Cardiomegaly [Unknown]
  - Patent ductus arteriosus [Unknown]
  - Brain injury [Unknown]
  - Upper respiratory tract infection [Unknown]
  - Pulmonary vein stenosis [Unknown]
  - Pneumonia [Recovering/Resolving]
  - Pulmonary vascular disorder [Unknown]
  - Otitis media acute [Recovering/Resolving]
  - Sinusitis [Recovering/Resolving]
  - Feeding disorder neonatal [Unknown]
  - Heart disease congenital [Unknown]
  - Congenital aortic atresia [Unknown]
  - Heart disease congenital [Unknown]
  - Mental impairment [Unknown]
  - Bulimia nervosa [Unknown]
  - Interstitial lung disease [Unknown]
  - Hepatic function abnormal [Unknown]
  - Respiratory distress [Unknown]
  - Motor dysfunction [Unknown]
  - Subdural haemorrhage [Unknown]
  - Cognitive disorder [Unknown]
  - Hepatomegaly [Unknown]
  - Viral infection [Unknown]
  - Atrial septal defect [Unknown]
  - Failure to thrive [Unknown]
  - Cyanosis [Unknown]
  - Dyspnoea [Unknown]
  - Developmental delay [Unknown]
  - Tachypnoea [Unknown]

NARRATIVE: CASE EVENT DATE: 20050225
